FAERS Safety Report 6726890-5 (Version None)
Quarter: 2010Q2

REPORT INFORMATION
  Report Type: 
  Country: None (occurrence: None)
  Receive Date: 20100517
  Receipt Date: 20100511
  Transmission Date: 20101027
  Serious: Yes (Other)
  Sender: FDA-Public Use
  Company Number: US-BIOGENIDEC-2010BI015593

PATIENT
  Age: 23 Year
  Sex: Female
  Weight: 72 kg

DRUGS (3)
  1. AVONEX [Suspect]
     Indication: MULTIPLE SCLEROSIS
     Route: 030
     Dates: start: 20100408
  2. MIRCETTE [Concomitant]
     Indication: CONTRACEPTION
  3. NAPROXEN [Concomitant]
     Indication: PREMEDICATION
     Dates: start: 20100408

REACTIONS (1)
  - ANAPHYLACTIC SHOCK [None]
